FAERS Safety Report 24949737 (Version 1)
Quarter: 2025Q1

REPORT INFORMATION
  Report Type: Report from Study
  Country: US (occurrence: US)
  Receive Date: 20250210
  Receipt Date: 20250210
  Transmission Date: 20250408
  Serious: Yes (Death)
  Sender: RECORDATI
  Company Number: US-ORPHANEU-2025000759

PATIENT

DRUGS (9)
  1. CYSTADANE [Suspect]
     Active Substance: BETAINE
     Indication: Homocystinuria
     Dosage: 4 GRAM, TID
     Route: 048
     Dates: start: 20190104
  2. CYSTADANE [Suspect]
     Active Substance: BETAINE
     Dosage: 5 GRAM, TID
     Route: 048
     Dates: start: 20240614
  3. HYDROXYZINE HYDROCHLORIDE [Concomitant]
     Active Substance: HYDROXYZINE HYDROCHLORIDE
     Indication: Product used for unknown indication
     Dosage: 25 MG, QD (TABLET)
     Route: 048
     Dates: start: 19960601
  4. PROPAFENONE HCL [Concomitant]
     Active Substance: PROPAFENONE HYDROCHLORIDE
     Indication: Product used for unknown indication
     Dosage: 150 MG, BID (ORAL TABLET)
     Route: 048
     Dates: start: 19960601
  5. TOPROL XL [Concomitant]
     Active Substance: METOPROLOL SUCCINATE
     Indication: Product used for unknown indication
     Dosage: 50 MG, BID (ORAL TABLET)
     Route: 048
     Dates: start: 19960601
  6. WARFARIN SODIUM [Concomitant]
     Active Substance: WARFARIN SODIUM
     Indication: Product used for unknown indication
     Dosage: 7.5 MG, QD (ORAL TABLET)
     Route: 048
     Dates: start: 19960601
  7. CALCIUM [Concomitant]
     Active Substance: CALCIUM
     Indication: Product used for unknown indication
     Dosage: 600 MG, QD (ORAL TABLET)
     Route: 048
     Dates: start: 20160729
  8. ADULT D3 [Concomitant]
     Indication: Product used for unknown indication
     Dosage: 1000 UNITS, QD (ORAL TABLET)
     Route: 048
     Dates: start: 20160729
  9. FOLIC ACID [Concomitant]
     Active Substance: FOLIC ACID
     Indication: Product used for unknown indication
     Dosage: 5 MG, QD (ORAL TABLET)
     Route: 048
     Dates: start: 20160729

REACTIONS (2)
  - Cerebral haemorrhage [Fatal]
  - Off label use [Recovered/Resolved]

NARRATIVE: CASE EVENT DATE: 20190104
